FAERS Safety Report 24636725 (Version 1)
Quarter: 2024Q4

REPORT INFORMATION
  Report Type: Spontaneous
  Country: GB (occurrence: GB)
  Receive Date: 20241119
  Receipt Date: 20241119
  Transmission Date: 20250115
  Serious: Yes (Other)
  Sender: BAYER HEALTHCARE PHARMACEUTICALS INC.
  Company Number: None

PATIENT
  Age: 35 Year
  Sex: Male
  Weight: 75 kg

DRUGS (6)
  1. CIPROFLOXACIN [Suspect]
     Active Substance: CIPROFLOXACIN
     Indication: Prostatitis
     Dosage: 500 MG, BID
     Route: 048
     Dates: start: 20240926, end: 20241024
  2. VITAMINS [Concomitant]
     Active Substance: VITAMINS
     Dates: start: 20240926
  3. TRIMETHOPRIM [Concomitant]
     Active Substance: TRIMETHOPRIM
     Dates: start: 20241022, end: 20241105
  4. AMOXICILLIN\CLAVULANATE POTASSIUM [Concomitant]
     Active Substance: AMOXICILLIN\CLAVULANATE POTASSIUM
     Dates: start: 20241106
  5. TAMSULOSIN [Concomitant]
     Active Substance: TAMSULOSIN
     Dates: start: 20241106
  6. AMITRIPTYLINE [Concomitant]
     Active Substance: AMITRIPTYLINE
     Dates: start: 20241104

REACTIONS (4)
  - Palpitations [Not Recovered/Not Resolved]
  - Anxiety [Not Recovered/Not Resolved]
  - Panic attack [Recovering/Resolving]
  - Poor quality sleep [Not Recovered/Not Resolved]

NARRATIVE: CASE EVENT DATE: 20241020
